FAERS Safety Report 9801780 (Version 2)
Quarter: 2014Q1

REPORT INFORMATION
  Report Type: Report from Study
  Country: US (occurrence: US)
  Receive Date: 20140107
  Receipt Date: 20140129
  Transmission Date: 20141002
  Serious: Yes (Other)
  Sender: FDA-Public Use
  Company Number: US-ALEXION-A201304486

PATIENT
  Age: 31 Year
  Sex: Female

DRUGS (7)
  1. SOLIRIS [Suspect]
     Indication: PAROXYSMAL NOCTURNAL HAEMOGLOBINURIA
     Dosage: UNK
     Route: 042
     Dates: start: 20110826
  2. SOLIRIS [Suspect]
     Dosage: 900 MG, UNKUNK
     Route: 042
  3. COUMADINE [Concomitant]
     Indication: ANTICOAGULANT THERAPY
     Dosage: 5 MG, QD
     Dates: start: 20110812
  4. PREDNISONE [Concomitant]
     Indication: STEROID THERAPY
     Dosage: UNK, QD
     Dates: start: 20110812
  5. PREDNISONE [Concomitant]
     Dosage: UNK
  6. FOLIC ACID [Concomitant]
     Indication: PRODUCT USED FOR UNKNOWN INDICATION
     Dosage: UNK, QD
  7. LOVENOX [Concomitant]
     Indication: ANTICOAGULANT THERAPY
     Dosage: UNK, QD
     Dates: start: 20131111

REACTIONS (1)
  - Haemoglobin decreased [Not Recovered/Not Resolved]
